FAERS Safety Report 4990336-8 (Version None)
Quarter: 2006Q2

REPORT INFORMATION
  Report Type: 
  Country: None (occurrence: None)
  Receive Date: 20060503
  Receipt Date: 20060329
  Transmission Date: 20061013
  Serious: No
  Sender: FDA-Public Use
  Company Number: 2006UW05690

PATIENT
  Age: 8 Year
  Sex: Female
  Weight: 35.5 kg

DRUGS (6)
  1. SEROQUEL [Suspect]
     Indication: BIPOLAR I DISORDER
     Route: 048
     Dates: start: 20051215
  2. SEROQUEL [Suspect]
     Route: 048
  3. CLARITIN [Concomitant]
     Indication: HYPERSENSITIVITY
  4. CLARITIN [Concomitant]
     Indication: ASTHMA
  5. QVAR 40 [Concomitant]
     Indication: HYPERSENSITIVITY
  6. QVAR 40 [Concomitant]
     Indication: ASTHMA

REACTIONS (2)
  - FATIGUE [None]
  - OCULOGYRATION [None]
